FAERS Safety Report 21734147 (Version 1)
Quarter: 2022Q4

REPORT INFORMATION
  Report Type: Spontaneous
  Country: CN (occurrence: None)
  Receive Date: 20221215
  Receipt Date: 20221215
  Transmission Date: 20230113
  Serious: Yes (Other)
  Sender: FDA-Public Use
  Company Number: CN-ROCHE-3238025

PATIENT
  Age: 56 Year
  Sex: Female

DRUGS (5)
  1. TRASTUZUMAB [Suspect]
     Active Substance: TRASTUZUMAB
     Indication: Breast cancer metastatic
     Dosage: THP: 23-APR-2020, 14-MAY-2020, 04-JUN-2020, 25-JUN-2020, 16-JUL-2020, 06-?AUG-2020,HP FOR 1 YEAR,XH
     Route: 041
  2. TRASTUZUMAB [Suspect]
     Active Substance: TRASTUZUMAB
     Dosage: H
     Route: 041
     Dates: start: 2022
  3. PERTUZUMAB [Suspect]
     Active Substance: PERTUZUMAB
     Indication: Breast cancer metastatic
     Route: 065
  4. DOCETAXEL [Concomitant]
     Active Substance: DOCETAXEL
     Indication: Breast cancer metastatic
     Dosage: THP: 23-APR-2020, 14-MAY-2020, 04-JUN-2020, 25-JUN-2020, 16-JUL-2020, 06-?AUG-2020
  5. CAPECITABINE [Concomitant]
     Active Substance: CAPECITABINE
     Indication: Breast cancer metastatic
     Dosage: XH (CAPECITABINE IS A NON-ROCHE DRUG)
     Route: 048
     Dates: start: 202203

REACTIONS (1)
  - Palmar-plantar erythrodysaesthesia syndrome [Unknown]

NARRATIVE: CASE EVENT DATE: 20220301
